FAERS Safety Report 4591703-7 (Version None)
Quarter: 2005Q1

REPORT INFORMATION
  Report Type: 
  Country: None (occurrence: None)
  Receive Date: 20050225
  Receipt Date: 20050118
  Transmission Date: 20050727
  Serious: Yes (Hospitalization)
  Sender: FDA-Public Use
  Company Number: US-ABBOTT-05P-163-0287434-00

PATIENT
  Sex: Male
  Weight: 83.536 kg

DRUGS (27)
  1. TARKA [Suspect]
     Indication: DRUG USE FOR UNKNOWN INDICATION
     Dosage: 02/180 MG
     Dates: start: 20050110, end: 20050114
  2. TARKA [Suspect]
     Dosage: 04/240 MG
     Dates: start: 20050113, end: 20050114
  3. LISINOPRIL [Concomitant]
     Indication: HYPERTENSION
     Dates: start: 20041208, end: 20041221
  4. LISINOPRIL [Concomitant]
     Dates: start: 20041222, end: 20050109
  5. LISINOPRIL [Concomitant]
     Dates: start: 20050115
  6. LISINOPRIL [Concomitant]
     Dates: start: 20010101, end: 20041207
  7. TORSEMIDE [Concomitant]
     Indication: HYPERTENSION
     Dates: start: 20041208, end: 20041214
  8. TORSEMIDE [Concomitant]
     Dates: start: 20041222, end: 20050109
  9. TORSEMIDE [Concomitant]
     Dates: start: 20041217, end: 20041223
  10. CLONIDINE [Concomitant]
     Indication: HYPERTENSION
     Dates: start: 20041215, end: 20041221
  11. CLONIDINE [Concomitant]
     Dates: start: 20041222, end: 20050109
  12. CLONIDINE [Concomitant]
     Dates: start: 20050113, end: 20050113
  13. NIFEDIPINE [Concomitant]
     Indication: HYPERTENSION
     Dates: start: 20030101, end: 20041207
  14. NIFEDIPINE [Concomitant]
     Dates: start: 20050115
  15. TERAZOSIN [Concomitant]
     Indication: HYPERTENSION
     Dates: start: 20030101, end: 20041207
  16. LOVASTATIN [Concomitant]
     Indication: HYPERLIPIDAEMIA
     Dates: start: 19980101
  17. ISOPHANE INSULIN [Concomitant]
     Indication: DIABETES MELLITUS
     Dosage: 20 UNITS IN AM, 8-15 UNITS IN PM
     Dates: start: 19940101
  18. ISOPHANE INSULIN [Concomitant]
     Dates: start: 20050119
  19. CLONAZEPAM [Concomitant]
     Indication: INSOMNIA
     Dates: start: 20030601
  20. POTASSIUM CHLORIDE [Concomitant]
     Indication: HYPOKALAEMIA
     Dates: start: 19980101, end: 20041207
  21. POTASSIUM CHLORIDE [Concomitant]
     Indication: HYPERTENSION
     Dates: start: 20050115
  22. METOPROLOL TARTRATE [Concomitant]
     Indication: HYPERTENSION
     Dates: start: 19960101, end: 20041207
  23. METOPROLOL TARTRATE [Concomitant]
     Dates: start: 20050115, end: 20050115
  24. FUROSEMIDE [Concomitant]
     Indication: HYPERTENSION
     Dates: start: 19980101, end: 20041207
  25. FUROSEMIDE [Concomitant]
     Dates: start: 20050115
  26. OMEPRAZOLE [Concomitant]
     Indication: DRUG USE FOR UNKNOWN INDICATION
     Dates: start: 20040601
  27. TERAZOSIN HYDROCHLORIDE [Concomitant]
     Indication: BENIGN PROSTATIC HYPERPLASIA
     Dates: start: 20050115

REACTIONS (1)
  - GASTROENTERITIS VIRAL [None]
